FAERS Safety Report 4442095-5 (Version None)
Quarter: 2004Q3

REPORT INFORMATION
  Report Type: 
  Country: None (occurrence: None)
  Receive Date: 20040903
  Receipt Date: 20040621
  Transmission Date: 20050211
  Serious: Yes (Hospitalization)
  Sender: FDA-Public Use
  Company Number: 2004UW11733

PATIENT
  Age: 66 Year
  Sex: Male
  Weight: 72.5755 kg

DRUGS (5)
  1. CRESTOR [Suspect]
     Indication: BLOOD CHOLESTEROL INCREASED
     Dosage: 5 MG QD PO
     Route: 048
     Dates: start: 20040601, end: 20040611
  2. PREDNISONE [Concomitant]
  3. ALBUTEROL [Concomitant]
  4. BUDESONIDE [Concomitant]
  5. STEROIDS [Concomitant]

REACTIONS (2)
  - DYSPNOEA [None]
  - MYALGIA [None]
